FAERS Safety Report 23534290 (Version 1)
Quarter: 2024Q1

REPORT INFORMATION
  Report Type: Spontaneous
  Country: SE (occurrence: SE)
  Receive Date: 20240217
  Receipt Date: 20240217
  Transmission Date: 20240410
  Serious: Yes (Other)
  Sender: FDA-Public Use
  Company Number: None

PATIENT
  Age: 77 Year
  Sex: Female

DRUGS (1)
  1. SIMVASTATIN [Suspect]
     Active Substance: SIMVASTATIN
     Indication: Product used for unknown indication
     Route: 065

REACTIONS (10)
  - Peripheral coldness [Unknown]
  - Nightmare [Unknown]
  - Muscle spasms [Unknown]
  - Pain in extremity [Unknown]
  - Social problem [Unknown]
  - Back pain [Unknown]
  - Chest discomfort [Unknown]
  - Insomnia [Unknown]
  - Musculoskeletal stiffness [Unknown]
  - Constipation [Unknown]
